FAERS Safety Report 11769600 (Version 2)
Quarter: 2015Q4

REPORT INFORMATION
  Report Type: Spontaneous
  Country: GB (occurrence: GB)
  Receive Date: 20151123
  Receipt Date: 20151124
  Transmission Date: 20160304
  Serious: Yes (Other)
  Sender: FDA-Public Use
  Company Number: GB-SA-2015SA182434

PATIENT
  Sex: Male

DRUGS (2)
  1. LANTUS [Suspect]
     Active Substance: INSULIN GLARGINE
     Route: 065
  2. CLIKSTAR [Concomitant]
     Active Substance: CLIKSTAR

REACTIONS (2)
  - Malaise [Unknown]
  - Road traffic accident [Unknown]
